FAERS Safety Report 11395650 (Version 1)
Quarter: 2015Q3

REPORT INFORMATION
  Report Type: Spontaneous
  Country: US (occurrence: US)
  Receive Date: 20150819
  Receipt Date: 20150819
  Transmission Date: 20151125
  Serious: No
  Sender: FDA-Public Use
  Company Number: US-JNJFOC-20150717642

PATIENT
  Age: 80 Year
  Sex: Male
  Weight: 111.13 kg

DRUGS (2)
  1. XARELTO [Suspect]
     Active Substance: RIVAROXABAN
     Indication: ANTICOAGULANT THERAPY
     Route: 048
     Dates: start: 20150717
  2. EPLERENONE. [Concomitant]
     Active Substance: EPLERENONE
     Indication: HYPOTENSION
     Route: 048
     Dates: start: 2015

REACTIONS (2)
  - Heart rate decreased [Recovered/Resolved]
  - International normalised ratio decreased [Unknown]

NARRATIVE: CASE EVENT DATE: 20150719
